FAERS Safety Report 8341738-3 (Version None)
Quarter: 2012Q2

REPORT INFORMATION
  Report Type: 
  Country: None (occurrence: None)
  Receive Date: 20120507
  Receipt Date: 20120501
  Transmission Date: 20120825
  Serious: Yes (Disabling, Other)
  Sender: FDA-Public Use
  Company Number: US-PFIZER INC-2012095476

PATIENT
  Sex: Female
  Weight: 81.633 kg

DRUGS (4)
  1. LISINOPRIL [Concomitant]
     Indication: HYPERTENSION
     Dosage: 20 MG, DAILY
  2. PREMARIN [Suspect]
     Indication: HYSTERECTOMY
     Dosage: UNK
     Route: 048
  3. PREMARIN [Suspect]
     Indication: HOT FLUSH
  4. HYDROCHLOROTHIAZIDE [Concomitant]
     Indication: HYPERTENSION
     Dosage: 25 MG, DAILY

REACTIONS (13)
  - GAIT DISTURBANCE [None]
  - FALL [None]
  - ARTHRITIS [None]
  - FEELING ABNORMAL [None]
  - SLEEP DISORDER [None]
  - HOT FLUSH [None]
  - DISLOCATION OF VERTEBRA [None]
  - BREAST CYST [None]
  - DEPENDENCE [None]
  - AFFECTIVE DISORDER [None]
  - NEUROPATHY PERIPHERAL [None]
  - RASH [None]
  - BACK PAIN [None]
